FAERS Safety Report 6433742-7 (Version None)
Quarter: 2009Q4

REPORT INFORMATION
  Report Type: 
  Country: None (occurrence: None)
  Receive Date: 20091106
  Receipt Date: 20091106
  Transmission Date: 20100525
  Serious: Yes (Other)
  Sender: FDA-Public Use
  Company Number: None

PATIENT
  Age: 18 Year
  Sex: Male
  Weight: 72.73 kg

DRUGS (1)
  1. LABETALOL HCL [Suspect]
     Indication: TACHYCARDIA
     Dosage: 100 MG BID PO
     Route: 048
     Dates: start: 20081022

REACTIONS (1)
  - HEPATIC ENZYME INCREASED [None]
